FAERS Safety Report 10763216 (Version 2)
Quarter: 2015Q1

REPORT INFORMATION
  Report Type: Spontaneous
  Country: DK (occurrence: DE)
  Receive Date: 20150204
  Receipt Date: 20150227
  Transmission Date: 20150721
  Serious: Yes (Other)
  Sender: FDA-Public Use
  Company Number: DE-FRI-1000074144

PATIENT
  Age: 0 Year
  Sex: Female
  Weight: 3.6 kg

DRUGS (7)
  1. CITALOPRAM [Suspect]
     Active Substance: CITALOPRAM HYDROBROMIDE
     Dosage: DOSAGE REDUCTION TO UNKNOWN DOSAGE
     Route: 064
     Dates: end: 20140711
  2. (S)-MILCHSAEURE [Concomitant]
     Indication: PROPHYLAXIS OF VAGINAL FLORA IMBALANCE
     Route: 064
     Dates: start: 20140226, end: 20140304
  3. CLOTRIMAZOLE. [Concomitant]
     Active Substance: CLOTRIMAZOLE
     Indication: VULVOVAGINAL MYCOTIC INFECTION
     Route: 064
     Dates: start: 20140220, end: 20140225
  4. CITALOPRAM [Suspect]
     Active Substance: CITALOPRAM HYDROBROMIDE
     Indication: DEPRESSION
     Dosage: 40 MG
     Route: 064
     Dates: start: 20131004
  5. OPTIGRAV [Concomitant]
     Indication: PROPHYLAXIS OF NEURAL TUBE DEFECT
     Dosage: 0.4 MG
     Route: 064
     Dates: start: 20131004, end: 20140722
  6. MAGNESIUM [Concomitant]
     Active Substance: MAGNESIUM
     Indication: SELF-MEDICATION
     Dosage: 525 MG
     Route: 064
     Dates: start: 20140522, end: 20140701
  7. OMEGA LICAPS [Concomitant]
     Indication: SELF-MEDICATION
     Route: 064

REACTIONS (2)
  - Foetal exposure during pregnancy [Recovered/Resolved]
  - Oxygen saturation abnormal [Recovered/Resolved]

NARRATIVE: CASE EVENT DATE: 20131004
